FAERS Safety Report 8373742-3 (Version None)
Quarter: 2012Q2

REPORT INFORMATION
  Report Type: 
  Country: None (occurrence: None)
  Receive Date: 20120521
  Receipt Date: 20120515
  Transmission Date: 20120825
  Serious: Yes (Hospitalization)
  Sender: FDA-Public Use
  Company Number: JP-PFIZER INC-2012087787

PATIENT
  Age: 82 Year
  Sex: Male
  Weight: 43 kg

DRUGS (13)
  1. DUTASTERIDE [Concomitant]
     Indication: BENIGN PROSTATIC HYPERPLASIA
     Dosage: 0.5 MG, 1X/DAY
     Route: 048
     Dates: end: 20120406
  2. TERIPARATIDE [Concomitant]
     Indication: OSTEOPOROSIS
     Dosage: 600 UG, 1X/DAY
     Route: 058
     Dates: end: 20120406
  3. DIFLUCAN [Suspect]
     Indication: ORAL FUNGAL INFECTION
     Dosage: 100 MG, 1X/DAY
     Route: 048
     Dates: end: 20120401
  4. SULFAMETHOXAZOLE AND TRIMETHOPRIM [Suspect]
     Indication: ORAL FUNGAL INFECTION
     Dosage: UNK
     Route: 048
     Dates: end: 20120406
  5. LIPITOR [Concomitant]
     Indication: HYPERCHOLESTEROLAEMIA
     Dosage: 10 MG, 1X/DAY
     Route: 048
     Dates: end: 20120406
  6. MEDROL [Suspect]
     Indication: VASCULITIS
     Dosage: 10 MG/DAY
     Route: 048
     Dates: end: 20120406
  7. LANSOPRAZOLE [Concomitant]
     Indication: GASTRITIS
     Dosage: 30 MG, 1X/DAY
     Route: 048
  8. SELBEX [Concomitant]
     Indication: GASTRITIS
     Dosage: 50 MG, 3X/DAY
     Route: 048
     Dates: end: 20120406
  9. PURSENNIDE [Concomitant]
     Indication: CONSTIPATION
     Dosage: 8 MG, 1X/DAY
     Route: 048
  10. NOVORAPID [Concomitant]
     Indication: BLOOD GLUCOSE FLUCTUATION
     Dosage: 0-12 IU, 3X/DAY
     Route: 058
     Dates: end: 20120406
  11. TAMSULOSIN HCL [Concomitant]
     Indication: BENIGN PROSTATIC HYPERPLASIA
     Dosage: 0.2 MG, 1X/DAY
     Route: 048
     Dates: end: 20120406
  12. LOXONIN [Concomitant]
     Indication: COMPRESSION FRACTURE
     Dosage: 60 MG, 2X/DAY
     Route: 048
     Dates: end: 20120406
  13. MEDICON [Concomitant]
     Indication: BRONCHITIS
     Dosage: 15 MG, AS NEEDED
     Route: 048
     Dates: end: 20120406

REACTIONS (1)
  - DIABETES MELLITUS INADEQUATE CONTROL [None]
